FAERS Safety Report 26118376 (Version 2)
Quarter: 2025Q4

REPORT INFORMATION
  Report Type: Spontaneous
  Country: US (occurrence: US)
  Receive Date: 20251203
  Receipt Date: 20251230
  Transmission Date: 20260117
  Serious: No
  Sender: TRAVERE THERAPEUTICS
  Company Number: US-TRAVERE-2025TVT02280

PATIENT
  Age: 69 Year
  Sex: Male

DRUGS (1)
  1. FILSPARI [Suspect]
     Active Substance: SPARSENTAN
     Indication: IgA nephropathy
     Route: 048
     Dates: start: 20251118

REACTIONS (7)
  - Muscle spasms [None]
  - Panic attack [None]
  - Insomnia [Unknown]
  - Gastrooesophageal reflux disease [Unknown]
  - Post-traumatic stress disorder [Unknown]
  - Anxiety [Unknown]
  - Bronchitis [Unknown]

NARRATIVE: CASE EVENT DATE: 20251118
